FAERS Safety Report 8477433-X (Version None)
Quarter: 2012Q2

REPORT INFORMATION
  Report Type: 
  Country: None (occurrence: None)
  Receive Date: 20120629
  Receipt Date: 20120625
  Transmission Date: 20120825
  Serious: Yes (Hospitalization, Other)
  Sender: FDA-Public Use
  Company Number: PHHY2011EC102059

PATIENT
  Sex: Female

DRUGS (3)
  1. ZOLEDRONOC ACID [Suspect]
     Dosage: 5 MG/100 ML
     Route: 042
     Dates: start: 20101001
  2. ZOLEDRONOC ACID [Suspect]
     Dosage: 5 MG/100 ML
     Route: 042
     Dates: start: 20110101
  3. ZOLEDRONOC ACID [Suspect]
     Indication: OSTEOPOROSIS
     Dosage: 5 MG/100 ML
     Route: 042
     Dates: start: 20080801

REACTIONS (7)
  - DIARRHOEA [None]
  - ABDOMINAL PAIN [None]
  - INAPPROPRIATE SCHEDULE OF DRUG ADMINISTRATION [None]
  - ABDOMINAL HERNIA [None]
  - RENAL FAILURE [None]
  - GASTRITIS [None]
  - FLATULENCE [None]
